FAERS Safety Report 19256030 (Version 1)
Quarter: 2021Q2

REPORT INFORMATION
  Report Type: Spontaneous
  Country: JP (occurrence: JP)
  Receive Date: 20210513
  Receipt Date: 20210513
  Transmission Date: 20210717
  Serious: Yes (Life-Threatening, Hospitalization)
  Sender: FDA-Public Use
  Company Number: JP-LUPIN PHARMACEUTICALS INC.-2021-06826

PATIENT
  Age: 18 Year
  Sex: Female

DRUGS (13)
  1. METHYLPREDNISOLONE. [Suspect]
     Active Substance: METHYLPREDNISOLONE
     Indication: LIMBIC ENCEPHALITIS
     Dosage: 1000 MILLIGRAM, QD
     Route: 065
  2. LEVETIRACETAM. [Suspect]
     Active Substance: LEVETIRACETAM
     Indication: DYSKINESIA
     Dosage: 1000 MILLIGRAM, QD
     Route: 065
  3. PROPOFOL. [Suspect]
     Active Substance: PROPOFOL
     Indication: SEIZURE
     Dosage: UNK, MAXIMUM 10 MG/H ON DAY 32
     Route: 065
  4. MIDAZOLAM. [Suspect]
     Active Substance: MIDAZOLAM
     Indication: DYSKINESIA
     Dosage: UNK, MAXIMUM 15 MG/HOUR
     Route: 065
  5. LEVETIRACETAM. [Suspect]
     Active Substance: LEVETIRACETAM
     Indication: SEIZURE
     Dosage: UNK UNK, QD (MAXIMUM DOSE 3000MG/DAY)
     Route: 065
  6. IMMUNOGLOBULIN (IMMUNOGLOBULIN NOS) [Suspect]
     Active Substance: IMMUNE GLOBULIN NOS
     Indication: LIMBIC ENCEPHALITIS
     Dosage: 400 MILLIGRAM/KILOGRAM
     Route: 065
  7. PHENOBARBITAL. [Suspect]
     Active Substance: PHENOBARBITAL
     Indication: SEIZURE
     Dosage: 200 MILLIGRAM, QD ON DAY 30
     Route: 065
  8. VALPROIC ACID. [Suspect]
     Active Substance: VALPROIC ACID
     Indication: SEIZURE
     Dosage: 1600 MILLIGRAM, QD, ON DAY 47
     Route: 065
  9. THIOPENTAL [Suspect]
     Active Substance: THIOPENTAL
     Indication: SEIZURE
     Dosage: UNK, MAXIMUM 5 ML/H ON DAY 36
     Route: 065
  10. MIDAZOLAM. [Suspect]
     Active Substance: MIDAZOLAM
     Indication: SEIZURE
  11. ACYCLOVIR. [Concomitant]
     Active Substance: ACYCLOVIR
     Indication: LIMBIC ENCEPHALITIS
     Dosage: 10 MILLIGRAM/KILOGRAM, TID
     Route: 065
  12. METHYLPREDNISOLONE. [Suspect]
     Active Substance: METHYLPREDNISOLONE
     Dosage: UNK (TWO MORE COURSES WERE GIVEN)
     Route: 065
  13. ZONISAMIDE. [Suspect]
     Active Substance: ZONISAMIDE
     Indication: SEIZURE
     Dosage: 400 MILLIGRAM, QD, ON DAY 60
     Route: 065

REACTIONS (1)
  - Therapy non-responder [Unknown]
